FAERS Safety Report 9676403 (Version 3)
Quarter: 2013Q4

REPORT INFORMATION
  Report Type: Report from Study
  Country: FR (occurrence: FR)
  Receive Date: 20131107
  Receipt Date: 20131126
  Transmission Date: 20140711
  Serious: Yes (Death, Hospitalization)
  Sender: FDA-Public Use
  Company Number: FR-PFIZER INC-2013314549

PATIENT
  Age: 74 Year
  Sex: Female

DRUGS (6)
  1. ESTRACYT [Suspect]
     Indication: BREAST CANCER METASTATIC
     Dosage: 140 MG, DAILY
     Route: 048
     Dates: start: 20091212, end: 2012
  2. ARIXTRA [Concomitant]
     Dosage: 2.5 MG, 1X/DAY
     Dates: start: 201112, end: 20120224
  3. FUROSEMIDE [Concomitant]
     Dosage: 40 MG, 1X/DAY
     Dates: start: 20120131, end: 20120224
  4. ATARAX [Concomitant]
     Dosage: 12.5 MG, 1X/DAY
     Dates: start: 20120131, end: 20120224
  5. APROVEL [Concomitant]
     Dosage: UNK
     Dates: start: 2010, end: 20120224
  6. TAVANIC [Concomitant]
     Dosage: UNK
     Dates: start: 20120206, end: 20120222

REACTIONS (1)
  - Pneumonia [Fatal]
